FAERS Safety Report 11779924 (Version 1)
Quarter: 2015Q4

REPORT INFORMATION
  Report Type: Report from Study
  Country: US (occurrence: US)
  Receive Date: 20151125
  Receipt Date: 20151125
  Transmission Date: 20160304
  Serious: Yes (Hospitalization, Other)
  Sender: FDA-Public Use
  Company Number: US-AMGEN-USASL2015124118

PATIENT
  Age: 60 Year
  Sex: Female

DRUGS (1)
  1. ENBREL [Suspect]
     Active Substance: ETANERCEPT
     Indication: ANKYLOSING SPONDYLITIS
     Dosage: 50 MG, QWK
     Route: 065
     Dates: start: 201411

REACTIONS (6)
  - Neuropathy peripheral [Unknown]
  - Wound infection [Unknown]
  - Wound [Unknown]
  - Knee arthroplasty [Unknown]
  - Cellulitis [Unknown]
  - Injection site erythema [Unknown]
